FAERS Safety Report 7481302-1 (Version None)
Quarter: 2011Q2

REPORT INFORMATION
  Report Type: 
  Country: None (occurrence: None)
  Receive Date: 20110506
  Receipt Date: 20110427
  Transmission Date: 20111010
  Serious: Yes (Hospitalization)
  Sender: FDA-Public Use
  Company Number: UTC-006720

PATIENT
  Age: 64 Year
  Sex: Male

DRUGS (2)
  1. TYVASO [Suspect]
     Indication: PULMONARY ARTERIAL HYPERTENSION
     Dosage: 216 MCG (54 MCG,4 IN 1 D), INHALATION
     Route: 055
     Dates: start: 20100501
  2. REVATIO [Concomitant]

REACTIONS (5)
  - RIB FRACTURE [None]
  - FALL [None]
  - HYPOTENSION [None]
  - SYNCOPE [None]
  - PNEUMONIA [None]
